FAERS Safety Report 6790690-0 (Version None)
Quarter: 2010Q2

REPORT INFORMATION
  Report Type: 
  Country: None (occurrence: None)
  Receive Date: 20100520
  Receipt Date: 20090429
  Transmission Date: 20101027
  Serious: Yes (Other)
  Sender: FDA-Public Use
  Company Number: 2008057105

PATIENT
  Age: 59 Year
  Sex: Female
  Weight: 68 kg

DRUGS (10)
  1. PROVERA [Suspect]
     Indication: HORMONE REPLACEMENT THERAPY
     Dosage: ORAL
     Route: 048
  2. PREMARIN [Suspect]
     Indication: HORMONE REPLACEMENT THERAPY
     Dosage: 0.625 MG
     Dates: start: 19950101, end: 19980101
  3. PREMPRO [Suspect]
     Indication: HORMONE REPLACEMENT THERAPY
     Dosage: 0.625 MG, 2.5 MG
     Dates: start: 20000101, end: 20020101
  4. ESTRATEST [Suspect]
     Indication: MENOPAUSE
     Dates: start: 19980101, end: 20000101
  5. SYNTHROID [Concomitant]
  6. LEVOTHROXINE (EVOTHYROXINE) [Concomitant]
  7. TOPROL-XL [Concomitant]
  8. OMEPRAZOLE [Concomitant]
  9. PRILOSEC (OMEPRAZOLE) [Concomitant]
  10. LIPITOR [Concomitant]

REACTIONS (1)
  - BREAST CANCER FEMALE [None]
